FAERS Safety Report 7805025-1 (Version None)
Quarter: 2011Q4

REPORT INFORMATION
  Report Type: 
  Country: None (occurrence: None)
  Receive Date: 20111010
  Receipt Date: 20110930
  Transmission Date: 20120403
  Serious: Yes (Hospitalization)
  Sender: FDA-Public Use
  Company Number: BR-GLAXOSMITHKLINE-A0947206A

PATIENT
  Sex: Female
  Weight: 58 kg

DRUGS (3)
  1. BECLOSOL [Suspect]
     Indication: ASTHMA
     Dosage: 12PUFF TWICE PER DAY
     Route: 045
     Dates: start: 20010101
  2. ALBUTEROL [Suspect]
     Indication: ASTHMA
     Dosage: 4PUFF TWICE PER DAY
     Route: 055
     Dates: start: 20010101
  3. AVAMYS [Concomitant]

REACTIONS (3)
  - TACHYCARDIA [None]
  - DYSPNOEA [None]
  - OVERDOSE [None]
